FAERS Safety Report 23871898 (Version 1)
Quarter: 2024Q2

REPORT INFORMATION
  Report Type: Spontaneous
  Country: US (occurrence: US)
  Receive Date: 20240520
  Receipt Date: 20240520
  Transmission Date: 20240716
  Serious: No
  Sender: FDA-Public Use
  Company Number: US-HORIZON THERAPEUTICS-HZN-2024-002617

PATIENT

DRUGS (4)
  1. TEPEZZA [Suspect]
     Active Substance: TEPROTUMUMAB-TRBW
     Indication: Endocrine ophthalmopathy
     Dosage: 700 MG, FIRST INFUSION
     Route: 042
     Dates: start: 20240117
  2. TEPEZZA [Suspect]
     Active Substance: TEPROTUMUMAB-TRBW
     Dosage: 700 MG, SECOND INFUSION
     Route: 042
     Dates: start: 20240207
  3. TEPEZZA [Suspect]
     Active Substance: TEPROTUMUMAB-TRBW
     Dosage: 1400 MG, THIRD INFUSION
     Route: 042
     Dates: start: 20240228
  4. TEPEZZA [Suspect]
     Active Substance: TEPROTUMUMAB-TRBW
     Dosage: 1400 MG, FOURTH INFUSION
     Route: 042
     Dates: start: 20240320

REACTIONS (4)
  - Nausea [Recovered/Resolved]
  - Malaise [Recovered/Resolved]
  - Lethargy [Recovered/Resolved]
  - Drug ineffective [Unknown]

NARRATIVE: CASE EVENT DATE: 20240101
